FAERS Safety Report 8529263 (Version 2)
Quarter: 2012Q4

REPORT INFORMATION
  Report Type: 
  Country: US (occurrence: US)
  Receive Date: 20120425
  Receipt Date: 20121205
  Transmission Date: 20130627
  Serious: Yes (Other)
  Sender: FDA-Public Use
  Company Number: US-BAYER-2012-040032

PATIENT
  Age: 17 Year
  Sex: Female
  Weight: 91.61 kg

DRUGS (4)
  1. YAZ [Suspect]
     Indication: MENSTRUAL CYCLE MANAGEMENT
     Dosage: UNK
     Dates: start: 200802, end: 20080409
  2. ADDERALL [Concomitant]
     Indication: ADHD
     Dosage: UNK
     Dates: start: 2006, end: 200804
  3. CONCERTA [Concomitant]
     Indication: ADHD
     Dosage: UNK
     Dates: start: 2003, end: 20080409
  4. ALEVE [Concomitant]

REACTIONS (16)
  - Cerebrovascular accident [None]
  - Cerebral ischaemia [None]
  - Injury [None]
  - Pain [None]
  - Emotional distress [None]
  - Anxiety [None]
  - General physical health deterioration [None]
  - Headache [None]
  - Dysarthria [None]
  - Gait disturbance [None]
  - Dizziness [None]
  - Asthenia [None]
  - Deafness unilateral [None]
  - Hemiparesis [None]
  - Fall [None]
  - Off label use [None]
